FAERS Safety Report 6072678-0 (Version None)
Quarter: 2009Q1

REPORT INFORMATION
  Report Type: 
  Country: None (occurrence: None)
  Receive Date: 20090210
  Receipt Date: 20090129
  Transmission Date: 20090719
  Serious: Yes (Other)
  Sender: FDA-Public Use
  Company Number: US-PFIZER INC-2009163002

PATIENT
  Sex: Male
  Weight: 68.481 kg

DRUGS (4)
  1. DETROL LA [Suspect]
     Indication: POLLAKIURIA
     Dosage: UNK
     Dates: start: 20090127
  2. METAMUCIL-2 [Interacting]
  3. LUPRON [Concomitant]
     Dosage: UNK
  4. ALL OTHER THERAPEUTIC PRODUCTS [Concomitant]

REACTIONS (2)
  - DRUG INTERACTION [None]
  - URINARY RETENTION [None]
